FAERS Safety Report 17214261 (Version 1)
Quarter: 2019Q4

REPORT INFORMATION
  Report Type: Spontaneous
  Country: US (occurrence: US)
  Receive Date: 20191206
  Receipt Date: 20191206
  Transmission Date: 20200122
  Serious: Yes (Hospitalization)
  Sender: FDA-Public Use
  Company Number: None

PATIENT
  Age: 79 Year
  Sex: Female

DRUGS (13)
  1. THERAGRAN [Concomitant]
     Active Substance: VITAMINS
  2. URSODIOL. [Concomitant]
     Active Substance: URSODIOL
  3. VIT D [Concomitant]
     Active Substance: VITAMIN D NOS
  4. OCALIVA [Suspect]
     Active Substance: OBETICHOLIC ACID
     Indication: PRIMARY BILIARY CHOLANGITIS
     Route: 048
     Dates: start: 20190430
  5. EXCEDRIN [Concomitant]
     Active Substance: ACETAMINOPHEN\ASPIRIN\CAFFEINE
  6. LOSARTAN. [Concomitant]
     Active Substance: LOSARTAN
  7. ZOLOFT [Concomitant]
     Active Substance: SERTRALINE HYDROCHLORIDE
  8. MAG OXIDE [Concomitant]
     Active Substance: MAGNESIUM OXIDE
  9. MILK THISTLE [Concomitant]
     Active Substance: DIETARY SUPPLEMENT\HERBALS\MILK THISTLE
  10. VITAMIN C [Concomitant]
     Active Substance: ASCORBIC ACID
  11. OMEPRAZOLE. [Concomitant]
     Active Substance: OMEPRAZOLE
  12. ZOLPIDEM [Concomitant]
     Active Substance: ZOLPIDEM TARTRATE
  13. PROBIOTIC [Concomitant]
     Active Substance: PROBIOTICS NOS

REACTIONS (2)
  - Femur fracture [None]
  - Therapy cessation [None]

NARRATIVE: CASE EVENT DATE: 201911
